FAERS Safety Report 7279861-7 (Version None)
Quarter: 2011Q1

REPORT INFORMATION
  Report Type: 
  Country: None (occurrence: None)
  Receive Date: 20110208
  Receipt Date: 20110125
  Transmission Date: 20110831
  Serious: Yes (Hospitalization, Other)
  Sender: FDA-Public Use
  Company Number: GB-MYLANLABS-2011S1001609

PATIENT
  Age: 60 Year
  Sex: Female

DRUGS (15)
  1. LYRICA [Suspect]
     Indication: GENERALISED ANXIETY DISORDER
     Dates: start: 20100501, end: 20100701
  2. LYRICA [Suspect]
     Dates: start: 20100726, end: 20100801
  3. PROMETHAZINE [Suspect]
     Indication: SLEEP DISORDER
     Dates: start: 20100501
  4. LYRICA [Suspect]
     Dates: start: 20100701, end: 20100701
  5. LYRICA [Suspect]
     Dates: start: 20100701, end: 20100726
  6. PROMETHAZINE [Suspect]
     Indication: ANXIETY
     Dates: start: 20100501
  7. SERTRALINE HYDROCHLORIDE [Suspect]
  8. SIMVASTATIN [Suspect]
     Indication: PRODUCT USED FOR UNKNOWN INDICATION
  9. ATENOLOL [Suspect]
     Indication: PRODUCT USED FOR UNKNOWN INDICATION
  10. ZOPICLONE [Suspect]
     Indication: SLEEP DISORDER
  11. DOSULEPIN [Suspect]
     Indication: DEPRESSION
     Dates: end: 20100501
  12. SERTRALINE HYDROCHLORIDE [Suspect]
     Indication: PRODUCT USED FOR UNKNOWN INDICATION
     Dates: start: 20100501
  13. ACETYLSALICYLIC ACID [Suspect]
     Indication: PRODUCT USED FOR UNKNOWN INDICATION
  14. DIAZEPAM [Suspect]
     Indication: PRODUCT USED FOR UNKNOWN INDICATION
  15. CITALOPRAM [Suspect]
     Indication: PRODUCT USED FOR UNKNOWN INDICATION

REACTIONS (27)
  - CONFUSIONAL STATE [None]
  - ORAL DISCOMFORT [None]
  - MALAISE [None]
  - INSOMNIA [None]
  - TREMOR [None]
  - ANAEMIA [None]
  - HYPOCHONDRIASIS [None]
  - MYALGIA [None]
  - NAUSEA [None]
  - WEIGHT DECREASED [None]
  - ANXIETY [None]
  - OVERDOSE [None]
  - MUSCLE TWITCHING [None]
  - MUSCLE ATROPHY [None]
  - HYPERHIDROSIS [None]
  - DEPRESSION [None]
  - DIZZINESS [None]
  - PAIN [None]
  - URINARY TRACT INFECTION [None]
  - VOMITING [None]
  - AGGRESSION [None]
  - DECREASED APPETITE [None]
  - LETHARGY [None]
  - SYNCOPE [None]
  - PANIC ATTACK [None]
  - DIARRHOEA [None]
  - SUICIDAL IDEATION [None]
